FAERS Safety Report 20155798 (Version 1)
Quarter: 2021Q4

REPORT INFORMATION
  Report Type: Spontaneous
  Country: CA (occurrence: CA)
  Receive Date: 20211207
  Receipt Date: 20211207
  Transmission Date: 20220303
  Serious: Yes (Hospitalization)
  Sender: FDA-Public Use
  Company Number: CA-NORTHSTAR HEALTHCARE HOLDINGS-CA-2021NSR000175

PATIENT

DRUGS (1)
  1. PROPRANOLOL HYDROCHLORIDE [Suspect]
     Active Substance: PROPRANOLOL HYDROCHLORIDE
     Indication: Infantile haemangioma
     Dosage: 0.5 MG/KG/D TWICE A DAY AND TITRATED WEEKLY UNTIL THE MAXIMUM DOSE OF 2 MG/KG/D
     Route: 048

REACTIONS (1)
  - Pneumonitis [Recovered/Resolved]
